FAERS Safety Report 12902476 (Version 1)
Quarter: 2016Q4

REPORT INFORMATION
  Report Type: Spontaneous
  Country: US (occurrence: US)
  Receive Date: 20161031
  Receipt Date: 20161031
  Transmission Date: 20170207
  Serious: Yes (Death)
  Sender: FDA-Public Use
  Company Number: None

PATIENT
  Age: 2 Year
  Sex: Male
  Weight: 11.25 kg

DRUGS (3)
  1. VERSED [Concomitant]
     Active Substance: MIDAZOLAM HYDROCHLORIDE
  2. PHENOBARBITAL. [Suspect]
     Active Substance: PHENOBARBITAL
  3. ATIVAN [Suspect]
     Active Substance: LORAZEPAM

REACTIONS (4)
  - Homicide [None]
  - Shock [None]
  - Brain death [None]
  - Hypotension [None]

NARRATIVE: CASE EVENT DATE: 20050921
